FAERS Safety Report 5291422-8 (Version None)
Quarter: 2007Q2

REPORT INFORMATION
  Report Type: 
  Country: None (occurrence: None)
  Receive Date: 20070402
  Receipt Date: 20070322
  Transmission Date: 20071010
  Serious: Yes (Hospitalization)
  Sender: FDA-Public Use
  Company Number: 2007SP004437

PATIENT
  Age: 28 Year
  Sex: Female
  Weight: 58 kg

DRUGS (3)
  1. PEG-INTRON [Suspect]
     Indication: HEPATITIS C
     Dosage: 80 MCG;QW;SC
     Route: 058
     Dates: start: 20070302, end: 20070302
  2. REBETOL [Suspect]
     Indication: HEPATITIS C
     Dosage: 600 MG;QD;PO
     Route: 048
     Dates: start: 20070302, end: 20070303
  3. VOLTAREN [Suspect]
     Indication: PYREXIA
     Dosage: 25 MG;PRN;PO
     Route: 048
     Dates: start: 20070302, end: 20070302

REACTIONS (8)
  - ALANINE AMINOTRANSFERASE INCREASED [None]
  - ASPARTATE AMINOTRANSFERASE INCREASED [None]
  - BLOOD LACTATE DEHYDROGENASE INCREASED [None]
  - HEPATIC FUNCTION ABNORMAL [None]
  - LIVER DISORDER [None]
  - MALAISE [None]
  - PROTHROMBIN TIME PROLONGED [None]
  - PYREXIA [None]
